FAERS Safety Report 14347177 (Version 1)
Quarter: 2018Q1

REPORT INFORMATION
  Report Type: Spontaneous
  Country: US (occurrence: US)
  Receive Date: 20180102
  Receipt Date: 20180102
  Transmission Date: 20180509
  Serious: Yes (Other)
  Sender: FDA-Public Use
  Company Number: None

PATIENT
  Sex: Male
  Weight: 67.5 kg

DRUGS (8)
  1. OMEGA 3/EPA [Concomitant]
  2. LEVOCETIRIZINE DIHYDROCHLOR [Concomitant]
  3. VITAMIN D [Concomitant]
     Active Substance: CHOLECALCIFEROL
  4. QNASL HFA AER AD [Concomitant]
  5. FOCALIN [Concomitant]
     Active Substance: DEXMETHYLPHENIDATE HYDROCHLORIDE
  6. DEXMETHYLPHENIDATE ER 25MG CP [Suspect]
     Active Substance: DEXMETHYLPHENIDATE HYDROCHLORIDE
     Indication: ATTENTION DEFICIT/HYPERACTIVITY DISORDER
     Dosage: ?          QUANTITY:90 CAPSULE(S);?
     Route: 048
     Dates: start: 20170315, end: 20170514
  7. MELATONIN [Concomitant]
     Active Substance: MELATONIN
  8. DEXMETHYLPHENIDATE ER 30MG CP [Suspect]
     Active Substance: DEXMETHYLPHENIDATE HYDROCHLORIDE
     Indication: ATTENTION DEFICIT/HYPERACTIVITY DISORDER
     Dosage: ?          QUANTITY:90 CAPSULE(S);?
     Route: 048
     Dates: start: 20170515, end: 20170519

REACTIONS (7)
  - Aggression [None]
  - Therapy change [None]
  - Mood swings [None]
  - Drug ineffective [None]
  - Condition aggravated [None]
  - Product substitution issue [None]
  - Impulse-control disorder [None]

NARRATIVE: CASE EVENT DATE: 20170510
